FAERS Safety Report 21256668 (Version 1)
Quarter: 2022Q3

REPORT INFORMATION
  Report Type: Report from Study
  Country: US (occurrence: US)
  Receive Date: 20220826
  Receipt Date: 20220826
  Transmission Date: 20221027
  Serious: Yes (Other)
  Sender: FDA-Public Use
  Company Number: US-SUN PHARMACEUTICAL INDUSTRIES LTD-2022R1-352216

PATIENT
  Age: 9 Year

DRUGS (2)
  1. BUDESONIDE [Suspect]
     Active Substance: BUDESONIDE
     Indication: Duodenitis
     Dosage: 9 MILLIGRAM
     Route: 065
  2. FLUTICASONE [Suspect]
     Active Substance: FLUTICASONE
     Indication: Duodenitis
     Dosage: 220 MCG 2 PUFFS BID
     Route: 065

REACTIONS (2)
  - Cushingoid [Recovered/Resolved]
  - Weight increased [Unknown]
